FAERS Safety Report 8054375-5 (Version None)
Quarter: 2012Q1

REPORT INFORMATION
  Report Type: 
  Country: None (occurrence: None)
  Receive Date: 20120118
  Receipt Date: 20120116
  Transmission Date: 20120608
  Serious: Yes (Hospitalization, Other)
  Sender: FDA-Public Use
  Company Number: US-BAYER-2011-121986

PATIENT
  Age: 69 Year
  Sex: Female

DRUGS (2)
  1. FLUORODEOXYGLUCOSE F 18 [Concomitant]
     Dosage: 15 MCI, ONCE
     Dates: start: 20111205, end: 20111205
  2. ULTRAVIST 150 [Suspect]
     Indication: COMPUTERISED TOMOGRAM
     Dosage: UNK
     Route: 042
     Dates: start: 20111205, end: 20111205

REACTIONS (4)
  - ABDOMINAL DISCOMFORT [None]
  - DYSPNOEA [None]
  - ANAPHYLACTIC REACTION [None]
  - NAUSEA [None]
